FAERS Safety Report 4508425-0 (Version None)
Quarter: 2004Q4

REPORT INFORMATION
  Report Type: 
  Country: None (occurrence: None)
  Receive Date: 20041123
  Receipt Date: 20040206
  Transmission Date: 20050328
  Serious: Yes (Disabling)
  Sender: FDA-Public Use
  Company Number: US-GLAXOSMITHKLINE-A0497093A

PATIENT
  Age: 8 Year
  Sex: Male

DRUGS (2)
  1. WELLBUTRIN [Suspect]
     Indication: ATTENTION DEFICIT/HYPERACTIVITY DISORDER
     Route: 048
     Dates: start: 20030101, end: 20040101
  2. RISPERDAL [Concomitant]
     Dosage: 2MG AT NIGHT
     Route: 048
     Dates: start: 20030101

REACTIONS (1)
  - HALLUCINATION [None]
